FAERS Safety Report 25744234 (Version 1)
Quarter: 2025Q3

REPORT INFORMATION
  Report Type: Report from Study
  Country: US (occurrence: US)
  Receive Date: 20250901
  Receipt Date: 20250901
  Transmission Date: 20251021
  Serious: Yes (Hospitalization)
  Sender: CSL BEHRING
  Company Number: US-BEH-2025216851

PATIENT
  Age: 54 Year
  Sex: Male
  Weight: 95.45 kg

DRUGS (1)
  1. HIZENTRA [Suspect]
     Active Substance: HUMAN IMMUNOGLOBULIN G
     Indication: Product used for unknown indication
     Route: 065
     Dates: start: 202401, end: 202504

REACTIONS (8)
  - Muscle spasms [Unknown]
  - Sensory loss [Unknown]
  - Areflexia [Unknown]
  - Muscular weakness [Unknown]
  - Pain [Unknown]
  - Gait disturbance [Unknown]
  - Temperature perception test decreased [Unknown]
  - Product dose omission issue [Unknown]
